FAERS Safety Report 7718676-X (Version None)
Quarter: 2011Q3

REPORT INFORMATION
  Report Type: 
  Country: None (occurrence: None)
  Receive Date: 20110830
  Receipt Date: 20110816
  Transmission Date: 20111222
  Serious: No
  Sender: FDA-Public Use
  Company Number: US-B.I. PHARMACEUTICALS,INC./RIDGEFIELD-2011-BP-18516BP

PATIENT
  Age: 85 Year
  Sex: Male

DRUGS (6)
  1. PRADAXA [Suspect]
     Indication: ATRIAL FIBRILLATION
     Dosage: 300 MG
     Route: 048
     Dates: start: 20110718, end: 20110719
  2. LIPITOR [Concomitant]
     Dosage: 10 MG
  3. TORSEMIDE [Concomitant]
     Dosage: 40 MG
  4. ISOSORBIDE MONANISTRATE [Concomitant]
  5. TOPROL-XL [Concomitant]
     Dosage: 100 MG
  6. GLIPIZIDE [Concomitant]

REACTIONS (3)
  - NAUSEA [None]
  - ABDOMINAL DISCOMFORT [None]
  - VOMITING [None]
